FAERS Safety Report 11270221 (Version 2)
Quarter: 2015Q3

REPORT INFORMATION
  Report Type: Spontaneous
  Country: IE (occurrence: IE)
  Receive Date: 20150714
  Receipt Date: 20150915
  Transmission Date: 20151125
  Serious: Yes (Hospitalization, Other)
  Sender: FDA-Public Use
  Company Number: IE-SA-2015SA099523

PATIENT
  Age: 28 Year
  Sex: Male

DRUGS (2)
  1. INSULIN GLARGINE [Suspect]
     Active Substance: INSULIN GLARGINE
     Indication: TYPE 1 DIABETES MELLITUS
     Route: 058
  2. INSULIN ASPART [Concomitant]
     Active Substance: INSULIN ASPART
     Indication: TYPE 1 DIABETES MELLITUS
     Route: 058

REACTIONS (7)
  - Hypoglycaemia [Unknown]
  - Cataract cortical [Unknown]
  - Visual acuity reduced [Unknown]
  - Vision blurred [Unknown]
  - Diabetic retinopathy [Unknown]
  - Macular oedema [Unknown]
  - Vitreous haemorrhage [Unknown]
